FAERS Safety Report 15049686 (Version 2)
Quarter: 2021Q4

REPORT INFORMATION
  Report Type: Spontaneous
  Country: US (occurrence: US)
  Receive Date: 20180622
  Receipt Date: 20211005
  Transmission Date: 20220303
  Serious: No
  Sender: FDA-Public Use
  Company Number: US-ADAMAS PHARMA, LLC-2018ADA00369

PATIENT
  Age: 58 Year
  Sex: Female
  Weight: 50.79 kg

DRUGS (19)
  1. GOCOVRI [Suspect]
     Active Substance: AMANTADINE
     Indication: Dyskinesia
     Dosage: 137 MG, 1X/DAY
     Route: 048
     Dates: start: 201801, end: 2018
  2. GOCOVRI [Suspect]
     Active Substance: AMANTADINE
     Dosage: 274 MG, 1X/DAY
     Route: 048
     Dates: start: 2018, end: 20180410
  3. GOCOVRI [Suspect]
     Active Substance: AMANTADINE
     Dosage: 137 MG, 1X/DAY
     Dates: start: 20180411
  4. GOCOVRI [Suspect]
     Active Substance: AMANTADINE
     Dosage: UNK
  5. GOCOVRI [Suspect]
     Active Substance: AMANTADINE
     Dosage: 137 MG, 1X/DAY AT  NIGHT
     Route: 048
     Dates: start: 20201204
  6. TRAZODONE [Concomitant]
     Active Substance: TRAZODONE HYDROCHLORIDE
  7. ZOLOFT [Concomitant]
     Active Substance: SERTRALINE HYDROCHLORIDE
  8. EXEMESTANE [Concomitant]
     Active Substance: EXEMESTANE
  9. RYTARY [Concomitant]
     Active Substance: CARBIDOPA\LEVODOPA
  10. VITAMIN D [Concomitant]
     Active Substance: VITAMIN D NOS
  11. CELEBREX [Concomitant]
     Active Substance: CELECOXIB
  12. UNSPECIFIED PROBIOTIC [Concomitant]
  13. DIETARY SUPPLEMENT\HERBALS [Concomitant]
     Active Substance: DIETARY SUPPLEMENT\HERBALS
  14. RESERVATROL [Concomitant]
  15. DEEP BRAIN STIMULATION [Concomitant]
     Dosage: IMPLANTED
     Dates: start: 2014
  16. DEEP BRAIN STIMULATION [Concomitant]
     Dosage: CHANGED SETTINGS
     Dates: start: 202011
  17. NEUPRO [Concomitant]
     Active Substance: ROTIGOTINE
  18. FISH OIL [Concomitant]
     Active Substance: FISH OIL
  19. VITAMIN E [Concomitant]
     Active Substance: .ALPHA.-TOCOPHEROL

REACTIONS (10)
  - Skin warm [Unknown]
  - Erythema [Unknown]
  - Pain in extremity [Recovered/Resolved]
  - Livedo reticularis [Recovered/Resolved]
  - Peripheral swelling [Recovered/Resolved]
  - Oedema peripheral [Recovering/Resolving]
  - Depression [Unknown]
  - Suicidal ideation [Recovered/Resolved]
  - Dry mouth [Not Recovered/Not Resolved]
  - Fall [Not Recovered/Not Resolved]

NARRATIVE: CASE EVENT DATE: 20180101
